FAERS Safety Report 6829833-9 (Version None)
Quarter: 2010Q3

REPORT INFORMATION
  Report Type: 
  Country: None (occurrence: None)
  Receive Date: 20100706
  Receipt Date: 20100628
  Transmission Date: 20110219
  Serious: Yes (Death, Life-Threatening, Hospitalization, Other)
  Sender: FDA-Public Use
  Company Number: 2010AC000472

PATIENT
  Age: 76 Year
  Sex: Male
  Weight: 136.0791 kg

DRUGS (12)
  1. DIGOXIN [Suspect]
     Dosage: 0.25 MG; QD; PO
     Route: 048
     Dates: start: 20080321, end: 20080407
  2. DIGOXIN [Suspect]
     Dosage: 0.125 MG; PO
     Route: 048
     Dates: start: 20080121, end: 20080320
  3. TAPAZOLE [Concomitant]
  4. ZAROXOLYN [Concomitant]
  5. HUMALOG [Concomitant]
  6. LANTUS [Concomitant]
  7. LASIX [Concomitant]
  8. ASPIRIN [Concomitant]
  9. LOPRESSOR [Concomitant]
  10. CYMBALTA [Concomitant]
  11. COUMADIN [Concomitant]
  12. OXYGEN [Concomitant]

REACTIONS (50)
  - ACUTE PRERENAL FAILURE [None]
  - ANHEDONIA [None]
  - ANXIETY [None]
  - BLOOD ALBUMIN DECREASED [None]
  - BLOOD CHLORIDE DECREASED [None]
  - BLOOD GLUCOSE INCREASED [None]
  - BLOOD SODIUM DECREASED [None]
  - BLOOD THYROID STIMULATING HORMONE INCREASED [None]
  - CARDIAC ARREST [None]
  - CARDIAC FAILURE CONGESTIVE [None]
  - CARDIOACTIVE DRUG LEVEL INCREASED [None]
  - CARDIOMEGALY [None]
  - CARDIOMYOPATHY [None]
  - CARDIOPULMONARY FAILURE [None]
  - CONDITION AGGRAVATED [None]
  - CORONARY ARTERY DISEASE [None]
  - DELIRIUM [None]
  - DIABETIC END STAGE RENAL DISEASE [None]
  - DIABETIC NEPHROPATHY [None]
  - ECONOMIC PROBLEM [None]
  - EMOTIONAL DISORDER [None]
  - FAMILY STRESS [None]
  - FATIGUE [None]
  - FEAR [None]
  - HEPATIC CONGESTION [None]
  - HEPATIC FIBROSIS [None]
  - HYPERTENSIVE NEPHROPATHY [None]
  - INTESTINAL ISCHAEMIA [None]
  - IRON DEFICIENCY ANAEMIA [None]
  - LOSS OF EMPLOYMENT [None]
  - LUNG INFILTRATION [None]
  - MENTAL DISORDER [None]
  - MENTAL IMPAIRMENT [None]
  - MENTAL STATUS CHANGES [None]
  - METABOLIC ALKALOSIS [None]
  - MULTIPLE INJURIES [None]
  - NEPHROGENIC ANAEMIA [None]
  - NEPHROSCLEROSIS [None]
  - PAIN [None]
  - PULMONARY CONGESTION [None]
  - PULMONARY OEDEMA [None]
  - SOCIAL PROBLEM [None]
  - SOMNOLENCE [None]
  - SUPRAVENTRICULAR EXTRASYSTOLES [None]
  - THERAPEUTIC AGENT TOXICITY [None]
  - TREATMENT FAILURE [None]
  - TREATMENT NONCOMPLIANCE [None]
  - VENOUS INSUFFICIENCY [None]
  - VENTRICULAR EXTRASYSTOLES [None]
  - VENTRICULAR TACHYARRHYTHMIA [None]
